FAERS Safety Report 12974015 (Version 3)
Quarter: 2017Q3

REPORT INFORMATION
  Report Type: Report from Study
  Country: DE (occurrence: DE)
  Receive Date: 20161124
  Receipt Date: 20170927
  Transmission Date: 20171127
  Serious: Yes (Death, Hospitalization)
  Sender: FDA-Public Use
  Company Number: DE-BIOGEN-2016BI00318782

PATIENT
  Age: 67 Year
  Sex: Male
  Weight: 65.9 kg

DRUGS (3)
  1. TRACLEER [Concomitant]
     Active Substance: BOSENTAN
     Indication: SCLERODERMA
     Route: 065
     Dates: start: 201605, end: 201607
  2. NIFEDIPIN [Concomitant]
     Active Substance: NIFEDIPINE
     Indication: SCLERODERMA
     Route: 065
     Dates: start: 2016, end: 20161104
  3. PLEGRIDY [Suspect]
     Active Substance: PEGINTERFERON BETA-1A
     Indication: MULTIPLE SCLEROSIS
     Route: 058
     Dates: start: 20150731, end: 20170531

REACTIONS (2)
  - Pulmonary oedema [Fatal]
  - Arrhythmia [Not Recovered/Not Resolved]

NARRATIVE: CASE EVENT DATE: 20161104
